FAERS Safety Report 8817284 (Version 1)
Quarter: 2012Q4

REPORT INFORMATION
  Report Type: 
  Country: BR (occurrence: BR)
  Receive Date: 20121001
  Receipt Date: 20121001
  Transmission Date: 20130627
  Serious: Yes (Death, Hospitalization)
  Sender: FDA-Public Use
  Company Number: BR-SANOFI-AVENTIS-2012SA070040

PATIENT
  Age: 76 Year
  Sex: Female
  Weight: 58 kg

DRUGS (3)
  1. LANTUS [Suspect]
     Indication: TYPE I DIABETES MELLITUS
     Route: 058
     Dates: start: 2008, end: 20120518
  2. CLIKSTAR [Suspect]
     Indication: DEVICE THERAPY
     Dates: start: 2008, end: 20120518
  3. FUROSEMIDE [Concomitant]

REACTIONS (2)
  - Myocardial infarction [Fatal]
  - Dyspnoea [Unknown]
